FAERS Safety Report 5401398-8 (Version None)
Quarter: 2007Q3

REPORT INFORMATION
  Report Type: 
  Country: None (occurrence: None)
  Receive Date: 20070731
  Receipt Date: 20070725
  Transmission Date: 20080115
  Serious: Yes (Hospitalization)
  Sender: FDA-Public Use
  Company Number: PHBS2007NO12476

PATIENT
  Age: 55 Year
  Sex: Female

DRUGS (6)
  1. VOLTAREN [Suspect]
     Indication: BACK PAIN
     Dosage: 50 MG, TID
     Dates: start: 20070101, end: 20070710
  2. MOBIC [Suspect]
     Dosage: 15 MG, BID
     Route: 048
     Dates: end: 20070710
  3. SURMONTIL [Concomitant]
     Dosage: 25-75 MG/DAY
     Route: 048
  4. PARALGIN FORTE [Concomitant]
     Dosage: UNK, TID
  5. SOBRIL [Concomitant]
     Dosage: 25 MG, TID
     Route: 048
  6. SUMATRIPTAN SUCCINATE [Concomitant]
     Dosage: UNK, PRN

REACTIONS (11)
  - ANAEMIA [None]
  - BACTERIAL DNA TEST POSITIVE [None]
  - C-REACTIVE PROTEIN INCREASED [None]
  - DIARRHOEA [None]
  - DUODENAL ULCER HAEMORRHAGE [None]
  - FAECES DISCOLOURED [None]
  - HAEMATEMESIS [None]
  - HAEMOGLOBIN DECREASED [None]
  - MELAENA [None]
  - VOMITING [None]
  - WHITE BLOOD CELL COUNT INCREASED [None]
